FAERS Safety Report 10558482 (Version 1)
Quarter: 2014Q4

REPORT INFORMATION
  Report Type: Spontaneous
  Country: BR (occurrence: BR)
  Receive Date: 20141031
  Receipt Date: 20141031
  Transmission Date: 20150529
  Serious: Yes (Hospitalization, Other)
  Sender: FDA-Public Use
  Company Number: PHHY2014BR140556

PATIENT
  Age: 56 Year
  Sex: Female

DRUGS (4)
  1. KLONOPIN [Suspect]
     Active Substance: CLONAZEPAM
     Indication: ANTIDEPRESSANT THERAPY
  2. PAMELOR [Suspect]
     Active Substance: NORTRIPTYLINE HYDROCHLORIDE
     Indication: OFF LABEL USE
  3. PAMELOR [Suspect]
     Active Substance: NORTRIPTYLINE HYDROCHLORIDE
     Indication: TREMOR
     Dosage: UNK UKN, QHS
     Route: 048
     Dates: start: 20140530, end: 20140602
  4. KLONOPIN [Suspect]
     Active Substance: CLONAZEPAM
     Indication: INSOMNIA
     Dosage: 1 TABLET OR 0.5 TABLET, QHS
     Route: 048

REACTIONS (6)
  - Vascular wall hypertrophy [Unknown]
  - Intracranial aneurysm [Unknown]
  - Anxiety [Not Recovered/Not Resolved]
  - Agitation [Unknown]
  - Insomnia [Not Recovered/Not Resolved]
  - Headache [Recovering/Resolving]

NARRATIVE: CASE EVENT DATE: 20140530
